FAERS Safety Report 9236286 (Version 1)
Quarter: 2013Q2

REPORT INFORMATION
  Report Type: Spontaneous
  Country: US (occurrence: US)
  Receive Date: 20130417
  Receipt Date: 20130417
  Transmission Date: 20140414
  Serious: No
  Sender: FDA-Public Use
  Company Number: US-009507513-1304USA007603

PATIENT
  Age: 64 Year
  Sex: Male
  Weight: 81.63 kg

DRUGS (3)
  1. VICTRELIS [Suspect]
     Dosage: TAKES 4 CAPSULES TID (EVERY 7 TO 9 HOURS) WITH FOOD STARTING DAY 29 OF TREATMENT
     Route: 048
  2. REBETOL [Suspect]
     Route: 048
  3. PEGASYS [Suspect]

REACTIONS (5)
  - Anaemia [Unknown]
  - Dizziness [Unknown]
  - Dyspnoea [Unknown]
  - Asthenia [Unknown]
  - Headache [Unknown]
